FAERS Safety Report 7788642-7 (Version None)
Quarter: 2011Q3

REPORT INFORMATION
  Report Type: 
  Country: None (occurrence: None)
  Receive Date: 20110930
  Receipt Date: 20110926
  Transmission Date: 20111222
  Serious: Yes (Other)
  Sender: FDA-Public Use
  Company Number: US-AMGEN-USASP2011049607

PATIENT
  Age: 57 Year
  Sex: Female

DRUGS (1)
  1. ENBREL [Suspect]
     Indication: RHEUMATOID ARTHRITIS
     Dosage: 50 MG, QWK
     Dates: start: 20110601

REACTIONS (10)
  - HEART RATE INCREASED [None]
  - INJECTION SITE HAEMORRHAGE [None]
  - FATIGUE [None]
  - RHEUMATOID ARTHRITIS [None]
  - CHEST PAIN [None]
  - COUGH [None]
  - NASOPHARYNGITIS [None]
  - STRESS [None]
  - PYREXIA [None]
  - INCREASED TENDENCY TO BRUISE [None]
